FAERS Safety Report 23136415 (Version 2)
Quarter: 2024Q1

REPORT INFORMATION
  Report Type: Report from Study
  Country: US (occurrence: US)
  Receive Date: 20231102
  Receipt Date: 20240105
  Transmission Date: 20240410
  Serious: Yes (Other)
  Sender: FDA-Public Use
  Company Number: US-ACADIA PHARMACEUTICALS INC.-ACA-2023-PIM-004894

PATIENT
  Sex: Female

DRUGS (1)
  1. NUPLAZID [Suspect]
     Active Substance: PIMAVANSERIN TARTRATE
     Indication: Illness
     Dosage: 34 MILLIGRAM, QD (NIGHTLY)
     Route: 048
     Dates: start: 202212

REACTIONS (4)
  - Gait inability [Unknown]
  - Illness [Unknown]
  - Hypophagia [Not Recovered/Not Resolved]
  - Off label use [Unknown]
